FAERS Safety Report 24178328 (Version 3)
Quarter: 2024Q3

REPORT INFORMATION
  Report Type: Spontaneous
  Country: US (occurrence: US)
  Receive Date: 20240806
  Receipt Date: 20240914
  Transmission Date: 20241016
  Serious: No
  Sender: ROCHE
  Company Number: US-ROCHE-10000049092

PATIENT

DRUGS (1)
  1. XOLAIR PFS [Suspect]
     Active Substance: OMALIZUMAB
     Indication: Chronic spontaneous urticaria
     Dosage: STRENGTH: 300MG/2ML
     Route: 058

REACTIONS (1)
  - Injection site pain [Unknown]
